FAERS Safety Report 7996339-3 (Version None)
Quarter: 2011Q4

REPORT INFORMATION
  Report Type: 
  Country: None (occurrence: None)
  Receive Date: 20111220
  Receipt Date: 20111207
  Transmission Date: 20120403
  Serious: Yes (Other)
  Sender: FDA-Public Use
  Company Number: US-ELI_LILLY_AND_COMPANY-US201102005873

PATIENT
  Sex: Female

DRUGS (16)
  1. OSCAL 500-D [Concomitant]
  2. PAXIL [Concomitant]
  3. FORTEO [Suspect]
     Dosage: 20 UG, QD
  4. FORTEO [Suspect]
     Dosage: 20 UG, QD
  5. FORTEO [Suspect]
     Dosage: 20 UG, QD
     Route: 065
  6. FORTEO [Suspect]
     Dosage: 20 UG, QD
  7. FORTEO [Suspect]
     Dosage: 20 UG, QD
  8. LIBRIUM [Concomitant]
  9. VITAMIN D [Concomitant]
  10. ASPIRIN [Concomitant]
  11. INDERAL [Concomitant]
  12. MULTI-VITAMIN [Concomitant]
  13. FORTEO [Suspect]
     Indication: OSTEOPOROSIS
     Dosage: 20 UG, QD
     Dates: start: 20110101
  14. FORTEO [Suspect]
     Dosage: 20 UG, QD
  15. VYTORIN [Concomitant]
  16. OXYBUTYNIN [Concomitant]

REACTIONS (21)
  - INFECTION [None]
  - INJECTION SITE HAEMORRHAGE [None]
  - WAIST CIRCUMFERENCE INCREASED [None]
  - WEIGHT INCREASED [None]
  - FATIGUE [None]
  - PAIN [None]
  - MULTIPLE ALLERGIES [None]
  - INJECTION SITE HAEMATOMA [None]
  - CAROTID ARTERY OCCLUSION [None]
  - HEART RATE INCREASED [None]
  - VISUAL IMPAIRMENT [None]
  - FALL [None]
  - COUGH [None]
  - HEARING IMPAIRED [None]
  - KIDNEY INFECTION [None]
  - MASS [None]
  - GENERAL PHYSICAL CONDITION ABNORMAL [None]
  - EYELID DISORDER [None]
  - CONTUSION [None]
  - THYROID DISORDER [None]
  - NASOPHARYNGITIS [None]
